FAERS Safety Report 5612962-5 (Version None)
Quarter: 2008Q1

REPORT INFORMATION
  Report Type: 
  Country: None (occurrence: None)
  Receive Date: 20080204
  Receipt Date: 20080123
  Transmission Date: 20080703
  Serious: Yes (Other)
  Sender: FDA-Public Use
  Company Number: US-PFIZER INC-2007086032

PATIENT
  Sex: Female
  Weight: 127.27 kg

DRUGS (8)
  1. LYRICA [Suspect]
     Indication: FIBROMYALGIA
     Dates: start: 20071001, end: 20071001
  2. KLONOPIN [Concomitant]
  3. EFFEXOR [Concomitant]
  4. TYLENOL [Concomitant]
  5. OXYCONTIN [Concomitant]
  6. BROMFED [Concomitant]
  7. PERCODAN [Concomitant]
  8. NORTRIPTYLINE HCL [Concomitant]

REACTIONS (19)
  - CONVULSION [None]
  - DIZZINESS [None]
  - DRUG DEPENDENCE [None]
  - EUPHORIC MOOD [None]
  - FATIGUE [None]
  - FEELING ABNORMAL [None]
  - FORMICATION [None]
  - GAIT DISTURBANCE [None]
  - HALLUCINATION [None]
  - HANGOVER [None]
  - HEADACHE [None]
  - HYPERACUSIS [None]
  - HYPERSENSITIVITY [None]
  - INSOMNIA [None]
  - PRURITUS [None]
  - RASH [None]
  - RESTLESSNESS [None]
  - SOMNOLENCE [None]
  - VISUAL DISTURBANCE [None]
